FAERS Safety Report 9891719 (Version 1)
Quarter: 2014Q1

REPORT INFORMATION
  Report Type: Spontaneous
  Country: US (occurrence: US)
  Receive Date: 20140212
  Receipt Date: 20140212
  Transmission Date: 20141002
  Serious: No
  Sender: FDA-Public Use
  Company Number: US-009507513-1402USA003656

PATIENT
  Sex: Male

DRUGS (5)
  1. CORICIDIN HBP COLD AND FLU [Suspect]
     Indication: NASOPHARYNGITIS
     Dosage: UNK, UNKNOWN
     Route: 048
  2. CORICIDIN HBP COLD AND FLU [Suspect]
     Indication: RHINORRHOEA
  3. CORICIDIN HBP COLD AND FLU [Suspect]
     Indication: SNEEZING
  4. CORICIDIN HBP COLD AND FLU [Suspect]
     Indication: PYREXIA
  5. CORICIDIN HBP COLD AND FLU [Suspect]
     Indication: FEELING ABNORMAL

REACTIONS (1)
  - Drug effect decreased [Unknown]
